FAERS Safety Report 10133119 (Version 2)
Quarter: 2014Q2

REPORT INFORMATION
  Report Type: Spontaneous
  Country: US (occurrence: US)
  Receive Date: 20140428
  Receipt Date: 20140428
  Transmission Date: 20141212
  Serious: No
  Sender: FDA-Public Use
  Company Number: US-BRACCO-009358

PATIENT
  Age: 49 Year
  Sex: Female
  Weight: 84 kg

DRUGS (3)
  1. PROHANCE [Suspect]
     Indication: NUCLEAR MAGNETIC RESONANCE IMAGING BRAIN
     Route: 042
     Dates: start: 20130313, end: 20130313
  2. PREDNISONE [Concomitant]
     Dates: start: 201303, end: 201303
  3. BENADRYL [Concomitant]
     Dates: start: 201303, end: 201303

REACTIONS (5)
  - Yawning [Unknown]
  - Rash [Unknown]
  - Pruritus [Unknown]
  - Urticaria [Unknown]
  - Dyspnoea [Unknown]
